FAERS Safety Report 12422707 (Version 3)
Quarter: 2016Q3

REPORT INFORMATION
  Report Type: Spontaneous
  Country: US (occurrence: US)
  Receive Date: 20160601
  Receipt Date: 20160822
  Transmission Date: 20161109
  Serious: Yes (Other)
  Sender: FDA-Public Use
  Company Number: US-ROCHE-1762706

PATIENT
  Age: 84 Year
  Sex: Female

DRUGS (3)
  1. VALIUM [Suspect]
     Active Substance: DIAZEPAM
     Route: 065
  2. VALIUM [Suspect]
     Active Substance: DIAZEPAM
     Indication: MENTAL DISORDER
     Dosage: 2.5 MG ONCE DAILY, 4 PILLS
     Route: 065
  3. PLAVIX [Concomitant]
     Active Substance: CLOPIDOGREL BISULFATE
     Dosage: INDICATION: 4 CARDIAC STENTS
     Route: 065

REACTIONS (9)
  - Drug dose omission [Unknown]
  - Skin mass [Not Recovered/Not Resolved]
  - Mental disorder [Unknown]
  - Rash [Not Recovered/Not Resolved]
  - Cardiac disorder [Unknown]
  - Pruritus [Not Recovered/Not Resolved]
  - Eye pruritus [Not Recovered/Not Resolved]
  - Product quality issue [Unknown]
  - Intentional product use issue [Unknown]

NARRATIVE: CASE EVENT DATE: 20160509
